FAERS Safety Report 6412168-6 (Version None)
Quarter: 2009Q4

REPORT INFORMATION
  Report Type: 
  Country: None (occurrence: None)
  Receive Date: 20091023
  Receipt Date: 20091020
  Transmission Date: 20100525
  Serious: No
  Sender: FDA-Public Use
  Company Number: A0800129A

PATIENT
  Age: 65 Year
  Sex: Female
  Weight: 72.7 kg

DRUGS (2)
  1. ADVAIR DISKUS 100/50 [Suspect]
     Indication: CHRONIC OBSTRUCTIVE PULMONARY DISEASE
     Dosage: 1PUFF TWICE PER DAY
     Route: 055
  2. UNKNOWN [Concomitant]

REACTIONS (1)
  - CHEST PAIN [None]
